FAERS Safety Report 7101960-0 (Version None)
Quarter: 2010Q4

REPORT INFORMATION
  Report Type: 
  Country: None (occurrence: None)
  Receive Date: 20101115
  Receipt Date: 20101105
  Transmission Date: 20110411
  Serious: Yes (Other)
  Sender: FDA-Public Use
  Company Number: US-SANOFI-AVENTIS-2010SA068329

PATIENT
  Age: 48 Year
  Sex: Female
  Weight: 95 kg

DRUGS (11)
  1. MULTAQ [Suspect]
     Route: 048
     Dates: start: 20091001, end: 20101101
  2. MULTAQ [Suspect]
     Route: 048
     Dates: start: 20101101
  3. TOPROL-XL [Suspect]
     Route: 048
     Dates: start: 20050101
  4. DEMADEX [Concomitant]
  5. SPIRONOLACTONE [Concomitant]
  6. LISINOPRIL [Concomitant]
  7. SILDENAFIL CITRATE [Concomitant]
  8. ASPIRIN [Concomitant]
  9. POTASSIUM CHLORIDE [Concomitant]
  10. CRESTOR [Concomitant]
  11. COUMADIN [Concomitant]

REACTIONS (11)
  - ABDOMINAL PAIN UPPER [None]
  - BLOOD POTASSIUM DECREASED [None]
  - CARDIAC FAILURE CONGESTIVE [None]
  - DYSPNOEA [None]
  - EJECTION FRACTION DECREASED [None]
  - FLATULENCE [None]
  - GAIT DISTURBANCE [None]
  - INCORRECT DOSE ADMINISTERED [None]
  - OEDEMA [None]
  - TRANSIENT ISCHAEMIC ATTACK [None]
  - WEIGHT INCREASED [None]
